APPROVED DRUG PRODUCT: QUINIDINE GLUCONATE
Active Ingredient: QUINIDINE GLUCONATE
Strength: 80MG/ML
Dosage Form/Route: INJECTABLE;INJECTION
Application: N007529 | Product #002
Applicant: ELI LILLY AND CO
Approved: Feb 10, 1989 | RLD: Yes | RS: No | Type: DISCN